FAERS Safety Report 7380272-4 (Version None)
Quarter: 2011Q1

REPORT INFORMATION
  Report Type: 
  Country: None (occurrence: None)
  Receive Date: 20110324
  Receipt Date: 20110324
  Transmission Date: 20110831
  Serious: Yes (Death)
  Sender: FDA-Public Use
  Company Number: None

PATIENT
  Age: 49 Year
  Sex: Male
  Weight: 69.4003 kg

DRUGS (2)
  1. AMBIEN [Suspect]
  2. LEXAPRO [Suspect]

REACTIONS (1)
  - COMPLETED SUICIDE [None]
